FAERS Safety Report 7527569-2 (Version None)
Quarter: 2011Q2

REPORT INFORMATION
  Report Type: 
  Country: None (occurrence: None)
  Receive Date: 20110527
  Receipt Date: 20110513
  Transmission Date: 20111010
  Serious: Yes (Death, Other)
  Sender: FDA-Public Use
  Company Number: 1000020926

PATIENT
  Age: 85 Year
  Sex: Female

DRUGS (1)
  1. MEMANTINE [Suspect]

REACTIONS (1)
  - URINARY TRACT INFECTION [None]
